FAERS Safety Report 7693912-7 (Version None)
Quarter: 2011Q3

REPORT INFORMATION
  Report Type: 
  Country: None (occurrence: None)
  Receive Date: 20110819
  Receipt Date: 20110812
  Transmission Date: 20111222
  Serious: Yes (Hospitalization)
  Sender: FDA-Public Use
  Company Number: JP-PFIZER INC-2011178206

PATIENT
  Age: 77 Year
  Sex: Female

DRUGS (3)
  1. EPIRUBICIN HYDROCHLORIDE [Suspect]
     Dosage: 15 MG, UNK
     Dates: start: 20110301
  2. GELPART [Suspect]
     Dosage: 1 MG, UNK
  3. LIPIODOL [Suspect]
     Dosage: 1.5 ML, UNK

REACTIONS (1)
  - HEPATIC INFARCTION [None]
